FAERS Safety Report 24350278 (Version 1)
Quarter: 2024Q3

REPORT INFORMATION
  Report Type: Report from Study
  Country: PE (occurrence: PE)
  Receive Date: 20240923
  Receipt Date: 20240923
  Transmission Date: 20241016
  Serious: No
  Sender: ROCHE
  Company Number: PE-ROCHE-3505742

PATIENT
  Age: 47 Year
  Sex: Female
  Weight: 53.0 kg

DRUGS (9)
  1. HERCEPTIN [Suspect]
     Active Substance: TRASTUZUMAB
     Indication: Breast cancer
     Route: 042
  2. HERCEPTIN [Suspect]
     Active Substance: TRASTUZUMAB
     Route: 042
  3. PERJETA [Suspect]
     Active Substance: PERTUZUMAB
     Indication: Breast cancer
     Route: 042
  4. SODIUM CHLORIDE [Concomitant]
     Active Substance: SODIUM CHLORIDE
     Route: 042
  5. RANITIDINE [Concomitant]
     Active Substance: RANITIDINE
     Route: 042
  6. CHLORPHENIRAMINE MALEATE [Concomitant]
     Active Substance: CHLORPHENIRAMINE MALEATE
     Dosage: DILUTION: 0.9% SODIUM CHLORIDE 100 ML. DOSING TIME: 10 MINUTES
     Route: 042
  7. ACETAMINOPHEN [Concomitant]
     Active Substance: ACETAMINOPHEN
     Route: 048
  8. ACETAMINOPHEN [Concomitant]
     Active Substance: ACETAMINOPHEN
     Dosage: DILUTION: 0.9% SODIUM CHLORIDE 100 ML. DOSING TIME: 15 MINUTES
     Route: 042
  9. ONDANSETRON [Concomitant]
     Active Substance: ONDANSETRON
     Dosage: DILUTION: 0.9% SODIUM CHLORIDE 100 ML. DOSING TIME: 10 MINUTES
     Route: 042

REACTIONS (2)
  - Intercepted medication error [Unknown]
  - Weight decreased [Unknown]
